FAERS Safety Report 15366786 (Version 1)
Quarter: 2018Q3

REPORT INFORMATION
  Report Type: Spontaneous
  Country: US (occurrence: US)
  Receive Date: 20180902
  Receipt Date: 20180902
  Transmission Date: 20181010
  Serious: Yes (Disabling)
  Sender: FDA-Public Use
  Company Number: None

PATIENT
  Age: 45 Year
  Sex: Male
  Weight: 87.75 kg

DRUGS (8)
  1. LYRICA [Concomitant]
     Active Substance: PREGABALIN
  2. CYMBALTA [Concomitant]
     Active Substance: DULOXETINE HYDROCHLORIDE
  3. DOXYCYCLINE. [Concomitant]
     Active Substance: DOXYCYCLINE
  4. ARTHROTEC [Concomitant]
     Active Substance: DICLOFENAC SODIUM\MISOPROSTOL
  5. ALLEGRA [Concomitant]
     Active Substance: FEXOFENADINE HYDROCHLORIDE
  6. LEVAQUIN [Suspect]
     Active Substance: LEVOFLOXACIN
     Indication: SINUSITIS
     Dosage: ?          QUANTITY:1 CAPSULE(S);?
     Route: 048
     Dates: start: 20140201, end: 20141001
  7. NASONEX [Concomitant]
     Active Substance: MOMETASONE FUROATE
  8. NOVOLIN 70/30 [Concomitant]
     Active Substance: INSULIN HUMAN

REACTIONS (31)
  - Peripheral swelling [None]
  - Dyspnoea [None]
  - Dysphagia [None]
  - Eye pain [None]
  - Depression [None]
  - Anxiety [None]
  - Joint swelling [None]
  - Carpal tunnel syndrome [None]
  - Insomnia [None]
  - Spinal osteoarthritis [None]
  - Arthralgia [None]
  - Langerhans^ cell histiocytosis [None]
  - Chest pain [None]
  - Balance disorder [None]
  - Muscle strain [None]
  - Diabetic neuropathy [None]
  - Sinus disorder [None]
  - Lymphadenopathy [None]
  - Mass [None]
  - Muscular weakness [None]
  - Pain in extremity [None]
  - Pulmonary mass [None]
  - Dizziness [None]
  - Diabetic complication [None]
  - Pain [None]
  - Tooth loss [None]
  - Bone erosion [None]
  - Diplopia [None]
  - Eyelid ptosis [None]
  - Myasthenia gravis [None]
  - Multiple sclerosis [None]

NARRATIVE: CASE EVENT DATE: 20141001
